FAERS Safety Report 10409929 (Version 1)
Quarter: 2014Q3

REPORT INFORMATION
  Report Type: Spontaneous
  Country: US (occurrence: US)
  Receive Date: 20140826
  Receipt Date: 20140826
  Transmission Date: 20150326
  Serious: No
  Sender: FDA-Public Use
  Company Number: US-GILEAD-2014-0112464

PATIENT
  Sex: Female

DRUGS (2)
  1. SOVALDI [Suspect]
     Active Substance: SOFOSBUVIR
     Indication: PRODUCT USED FOR UNKNOWN INDICATION
     Route: 065
  2. OLYSIO [Concomitant]
     Active Substance: SIMEPREVIR

REACTIONS (6)
  - Blister [Unknown]
  - Abnormal faeces [Unknown]
  - Rash [Unknown]
  - Nasal congestion [Unknown]
  - Abdominal discomfort [Unknown]
  - Frequent bowel movements [Unknown]
